FAERS Safety Report 12569755 (Version 1)
Quarter: 2016Q3

REPORT INFORMATION
  Report Type: Spontaneous
  Country: US (occurrence: US)
  Receive Date: 20160719
  Receipt Date: 20160719
  Transmission Date: 20161109
  Serious: No
  Sender: FDA-Public Use
  Company Number: US-ELI_LILLY_AND_COMPANY-US201607001326

PATIENT
  Age: 68 Year
  Sex: Female

DRUGS (2)
  1. LETAIRIS [Suspect]
     Active Substance: AMBRISENTAN
     Indication: PRODUCT USED FOR UNKNOWN INDICATION
     Dosage: 10 MG, QD
     Route: 065
     Dates: start: 201605
  2. ADCIRCA [Suspect]
     Active Substance: TADALAFIL
     Indication: PRODUCT USED FOR UNKNOWN INDICATION
     Dosage: 20 MG, BID
     Route: 065
     Dates: start: 201605

REACTIONS (9)
  - Upper-airway cough syndrome [Unknown]
  - Condition aggravated [Unknown]
  - Chills [Unknown]
  - Chest discomfort [Unknown]
  - Tremor [Unknown]
  - Bone pain [Unknown]
  - Headache [Unknown]
  - Cough [Unknown]
  - Pain in extremity [Unknown]
